FAERS Safety Report 19801165 (Version 4)
Quarter: 2021Q4

REPORT INFORMATION
  Report Type: Report from Study
  Country: JP (occurrence: JP)
  Receive Date: 20210908
  Receipt Date: 20211207
  Transmission Date: 20220303
  Serious: Yes (Hospitalization)
  Sender: FDA-Public Use
  Company Number: JP-SA-2021SA291534

PATIENT
  Age: 10 Year
  Sex: Male
  Weight: 35.4 kg

DRUGS (17)
  1. DUPILUMAB [Suspect]
     Active Substance: DUPILUMAB
     Indication: Dermatitis atopic
     Route: 058
  2. VALACYCLOVIR HYDROCHLORIDE [Suspect]
     Active Substance: VALACYCLOVIR HYDROCHLORIDE
     Indication: Product used for unknown indication
     Route: 061
  3. CHLORAMPHENICOL\NEOMYCIN SULFATE\PREDNISOLONE [Suspect]
     Active Substance: CHLORAMPHENICOL\NEOMYCIN SULFATE\PREDNISOLONE
     Indication: Product used for unknown indication
     Route: 061
  4. CHLORAMPHENICOL\NEOMYCIN SULFATE\PREDNISOLONE [Suspect]
     Active Substance: CHLORAMPHENICOL\NEOMYCIN SULFATE\PREDNISOLONE
     Indication: Impetigo
     Dosage: 10 G, BID
     Route: 061
     Dates: start: 20210902
  5. PROTOPIC [Concomitant]
     Active Substance: TACROLIMUS
     Indication: Dermatitis atopic
     Dosage: 0.5 G, BID
     Route: 061
     Dates: start: 20200910
  6. RINDERON V [Concomitant]
     Active Substance: BETAMETHASONE VALERATE
     Indication: Dermatitis atopic
     Dosage: 6 G, BID
     Route: 061
     Dates: start: 20200902, end: 20201013
  7. RINDERON V [Concomitant]
     Active Substance: BETAMETHASONE VALERATE
     Dosage: 6 G, Q3D
     Route: 061
     Dates: start: 20201013, end: 20210216
  8. RINDERON V [Concomitant]
     Active Substance: BETAMETHASONE VALERATE
     Dosage: 6 G, BIW
     Route: 061
     Dates: start: 20210216
  9. CHONDROITIN SULFATE (BOVINE) [Concomitant]
     Active Substance: CHONDROITIN SULFATE (BOVINE)
     Indication: Dermatitis atopic
     Dosage: 12 G, BID
     Route: 061
     Dates: start: 20200902
  10. MYSER [DIFLUPREDNATE] [Concomitant]
     Indication: Dermatitis atopic
     Dosage: 6 G, BID
     Route: 061
     Dates: start: 20200907, end: 20201013
  11. MYSER [DIFLUPREDNATE] [Concomitant]
     Dosage: 6 G, Q3D
     Route: 061
     Dates: start: 20201013, end: 20210216
  12. MYSER [DIFLUPREDNATE] [Concomitant]
     Dosage: 6 G, BIW
     Route: 061
     Dates: start: 20210216
  13. XYZAL [Concomitant]
     Active Substance: LEVOCETIRIZINE DIHYDROCHLORIDE
     Indication: Dermatitis atopic
     Dosage: 2.5 MG, BID
     Route: 048
     Dates: start: 20200831, end: 20210517
  14. RINDERON V [Concomitant]
     Active Substance: BETAMETHASONE VALERATE
     Indication: Dermatitis atopic
     Dosage: 2 G, QOD
     Route: 061
     Dates: start: 20201106
  15. NIZORAL [Concomitant]
     Active Substance: KETOCONAZOLE
     Indication: Dermatitis atopic
     Dosage: 2 G, QOD
     Route: 061
     Dates: start: 20201106
  16. PROTOPIC [Concomitant]
     Active Substance: TACROLIMUS
     Indication: Dermatitis atopic
     Dosage: 12 G, BI3D
     Route: 061
     Dates: start: 20201013, end: 20210216
  17. PROTOPIC [Concomitant]
     Active Substance: TACROLIMUS
     Dosage: 12 G, 5IW
     Route: 061
     Dates: start: 20210216

REACTIONS (1)
  - Impetigo [Recovered/Resolved]

NARRATIVE: CASE EVENT DATE: 20210801
